FAERS Safety Report 10483550 (Version 1)
Quarter: 2014Q3

REPORT INFORMATION
  Report Type: Spontaneous
  Country: US (occurrence: None)
  Receive Date: 20140929
  Receipt Date: 20140929
  Transmission Date: 20150326
  Serious: Yes (Life-Threatening, Hospitalization, Disabling, Other)
  Sender: FDA-Public Use
  Company Number: None

PATIENT
  Age: 2 Month
  Sex: Male
  Weight: 5.9 kg

DRUGS (1)
  1. BABY TEETHING [Suspect]
     Active Substance: ARABICA COFFEE BEAN\ATROPA BELLADONNA\CALCIUM PHOSPHATE\CHAMOMILE
     Indication: TEETHING
     Dosage: 1 1/2 MONTHS

REACTIONS (5)
  - Cerebral haemorrhage [None]
  - Rib fracture [None]
  - Convulsion [None]
  - Pyrexia [None]
  - Victim of child abuse [None]

NARRATIVE: CASE EVENT DATE: 20140626
